FAERS Safety Report 13457645 (Version 1)
Quarter: 2017Q2

REPORT INFORMATION
  Report Type: Spontaneous
  Country: US (occurrence: US)
  Receive Date: 20170419
  Receipt Date: 20170419
  Transmission Date: 20170830
  Serious: Yes (Hospitalization)
  Sender: FDA-Public Use
  Company Number: US-IPCA LABORATORIES LIMITED-IPC201704-000508

PATIENT
  Age: 42 Year
  Sex: Female

DRUGS (3)
  1. OSELTAMIVIR [Concomitant]
     Active Substance: OSELTAMIVIR
     Indication: H1N1 INFLUENZA
  2. VANCOMYCIN/CEFEPIME [Concomitant]
     Indication: CLOSTRIDIUM DIFFICILE INFECTION
  3. WARFARIN [Suspect]
     Active Substance: WARFARIN
     Indication: PULMONARY EMBOLISM

REACTIONS (3)
  - Obstructive uropathy [Recovered/Resolved]
  - Abdominal wall haematoma [Recovered/Resolved]
  - Acute kidney injury [Recovered/Resolved]
